FAERS Safety Report 19201060 (Version 1)
Quarter: 2021Q2

REPORT INFORMATION
  Report Type: Spontaneous
  Country: US (occurrence: US)
  Receive Date: 20210430
  Receipt Date: 20210430
  Transmission Date: 20210717
  Serious: Yes (Other)
  Sender: FDA-Public Use
  Company Number: US-B.I. PHARMACEUTICALS,INC./RIDGEFIELD-2021-BI-098361

PATIENT
  Age: 66 Year
  Sex: Male

DRUGS (11)
  1. FINASTERIDE. [Concomitant]
     Active Substance: FINASTERIDE
     Indication: PRODUCT USED FOR UNKNOWN INDICATION
     Dosage: FINASTERIDE 10 MG DAILY
     Route: 065
  2. CATAPRESAN [Suspect]
     Active Substance: CLONIDINE
     Dosage: CLONIDINE?PATCH 0.3 MG, ONE PATCH EVERY 7 DAYS
  3. SENNOSIDE [SENNOSIDE A+B] [Concomitant]
     Active Substance: SENNOSIDES A AND B
     Indication: PRODUCT USED FOR UNKNOWN INDICATION
     Dosage: SENNOSIDE 8.6 MG DAILY
     Route: 065
  4. ERGOCALCIFEROL. [Concomitant]
     Active Substance: ERGOCALCIFEROL
     Indication: PRODUCT USED FOR UNKNOWN INDICATION
     Dosage: ERGOCALCIFEROL 50,000 UNITS WEEKLY
     Route: 065
  5. DIVALPROEX SODIUM. [Concomitant]
     Active Substance: DIVALPROEX SODIUM
     Indication: PRODUCT USED FOR UNKNOWN INDICATION
     Dosage: DIVALPROEX SODIUM EXTENDED RELEASE (ER) 1,000 MG AT BEDTIME
     Route: 065
  6. SERTRALINE [Concomitant]
     Active Substance: SERTRALINE HYDROCHLORIDE
     Indication: PRODUCT USED FOR UNKNOWN INDICATION
     Dosage: SERTRALINE 50 MG DAILY
     Route: 065
  7. SODIUM BICARBONATE. [Concomitant]
     Active Substance: SODIUM BICARBONATE
     Indication: PRODUCT USED FOR UNKNOWN INDICATION
     Dosage: SODIUM BICARBONATE 650 MG TWICE DAILY.
     Route: 065
  8. METHADONE [Concomitant]
     Active Substance: METHADONE HYDROCHLORIDE
     Indication: PRODUCT USED FOR UNKNOWN INDICATION
     Dosage: 170 MG DAILY
     Route: 065
  9. FERROUS GLUCONATE [Concomitant]
     Active Substance: FERROUS GLUCONATE
     Indication: PRODUCT USED FOR UNKNOWN INDICATION
     Dosage: FERROUS GLUCONATE 324 MG THREE TIMES PER DAY
     Route: 065
  10. CATAPRESAN [Suspect]
     Active Substance: CLONIDINE
     Indication: PRODUCT USED FOR UNKNOWN INDICATION
     Dosage: CLONIDINE 0.2 MG, 19?TABLETS BY MOUTH AT BEDTIME (ONGOING TAPER),
     Route: 048
  11. PROPRANOLOL [Concomitant]
     Active Substance: PROPRANOLOL HYDROCHLORIDE
     Indication: PRODUCT USED FOR UNKNOWN INDICATION
     Dosage: PROPRANOLOL 40 MG DAILY
     Route: 065

REACTIONS (8)
  - Fall [Unknown]
  - Drug withdrawal syndrome [Unknown]
  - Hypokalaemia [Unknown]
  - Withdrawal hypertension [Unknown]
  - Drug abuse [Unknown]
  - Obsessive-compulsive disorder [Unknown]
  - Hypotension [Unknown]
  - Back pain [Unknown]
